FAERS Safety Report 5937823-3 (Version None)
Quarter: 2008Q4

REPORT INFORMATION
  Report Type: 
  Country: None (occurrence: None)
  Receive Date: 20081031
  Receipt Date: 20081021
  Transmission Date: 20090506
  Serious: Yes (Other)
  Sender: FDA-Public Use
  Company Number: FR-SANOFI-SYNTHELABO-A02200803149

PATIENT
  Sex: Male

DRUGS (6)
  1. DOLIPRANE [Suspect]
     Route: 048
     Dates: start: 20081017, end: 20081017
  2. SEROPLEX [Suspect]
     Indication: DRUG USE FOR UNKNOWN INDICATION
     Dosage: 2 TABLETS ONCE
     Route: 048
     Dates: start: 20081020, end: 20081020
  3. DEPAMIDE [Suspect]
     Indication: BIPOLAR DISORDER
     Route: 048
     Dates: start: 20081020, end: 20081020
  4. ZOLPIDEM [Suspect]
     Indication: DRUG USE FOR UNKNOWN INDICATION
     Route: 048
     Dates: start: 20081020, end: 20081020
  5. DOLIPRANE [Concomitant]
     Dosage: 2 TO 4 MG DAILY DOSE
     Route: 048
     Dates: start: 20081026
  6. DEPAMIDE [Concomitant]
     Dosage: UNK
     Route: 048

REACTIONS (2)
  - DELIRIUM [None]
  - MULTIPLE DRUG OVERDOSE INTENTIONAL [None]
